FAERS Safety Report 20862823 (Version 1)
Quarter: 2022Q2

REPORT INFORMATION
  Report Type: Spontaneous
  Country: FR (occurrence: FR)
  Receive Date: 20220523
  Receipt Date: 20220523
  Transmission Date: 20220721
  Serious: Yes (Other)
  Sender: FDA-Public Use
  Company Number: None

PATIENT
  Age: 61 Year
  Sex: Male

DRUGS (9)
  1. VALACYCLOVIR HYDROCHLORIDE [Interacting]
     Active Substance: VALACYCLOVIR HYDROCHLORIDE
     Indication: Opportunistic infection prophylaxis
     Dosage: 2 DOSAGE FORM, QD (1-0-1)
     Route: 048
     Dates: start: 20220223
  2. NEORAL [Interacting]
     Active Substance: CYCLOSPORINE
     Indication: Prophylaxis against transplant rejection
     Dosage: 2 DOSAGE FORM, QD (120 MG MORNING AND 130 MG EVENING)
     Route: 048
  3. RAMIPRIL [Concomitant]
     Active Substance: RAMIPRIL
     Dosage: UNK
  4. Calcidose [Concomitant]
     Dosage: UNK
  5. Solupred [Concomitant]
     Dosage: UNK
  6. LIPTRUZET [Concomitant]
     Active Substance: ATORVASTATIN CALCIUM\EZETIMIBE
     Dosage: UNK
  7. ESOMEPRAZOLE [Concomitant]
     Active Substance: ESOMEPRAZOLE
     Dosage: UNK
  8. KARDEGIC [Concomitant]
     Active Substance: ASPIRIN DL-LYSINE
  9. CELLCEPT [Concomitant]
     Active Substance: MYCOPHENOLATE MOFETIL
     Dosage: UNK

REACTIONS (2)
  - Acute kidney injury [Recovering/Resolving]
  - Drug interaction [Unknown]

NARRATIVE: CASE EVENT DATE: 20220307
